FAERS Safety Report 7501588-4 (Version None)
Quarter: 2011Q2

REPORT INFORMATION
  Report Type: 
  Country: None (occurrence: None)
  Receive Date: 20110524
  Receipt Date: 20110512
  Transmission Date: 20111010
  Serious: Yes (Death)
  Sender: FDA-Public Use
  Company Number: DK-WATSON-2011-07025

PATIENT
  Sex: Female

DRUGS (3)
  1. VENLAFAXINE [Concomitant]
     Indication: DEPRESSION
     Route: 048
  2. FLUCONAZOLE [Suspect]
     Indication: PRODUCT USED FOR UNKNOWN INDICATION
     Route: 065
  3. AMLODIPINE BESYLATE [Suspect]
     Indication: HYPERTENSION
     Route: 048

REACTIONS (3)
  - INHIBITORY DRUG INTERACTION [None]
  - ACCIDENTAL DEATH [None]
  - DRUG LEVEL INCREASED [None]
